FAERS Safety Report 9647866 (Version 1)
Quarter: 2013Q4

REPORT INFORMATION
  Report Type: Spontaneous
  Country: US (occurrence: US)
  Receive Date: 20131028
  Receipt Date: 20131028
  Transmission Date: 20140711
  Serious: No
  Sender: FDA-Public Use
  Company Number: US-PFIZER INC-2013303214

PATIENT
  Age: 66 Year
  Sex: Female

DRUGS (11)
  1. MORPHINE SULFATE [Suspect]
     Dosage: UNK
  2. OXYCODONE HYDROCHLORIDE [Suspect]
     Dosage: UNK
  3. FENTANYL [Suspect]
     Dosage: UNK
  4. TORADOL [Suspect]
     Dosage: UNK
  5. DILAUDID [Suspect]
     Dosage: UNK
  6. NALBUPHINE HYDROCHLORIDE [Suspect]
     Dosage: UNK
  7. OXYCONTIN [Suspect]
     Dosage: UNK
  8. ULTRAM [Suspect]
     Dosage: UNK
  9. HYDROCODONE [Suspect]
     Dosage: UNK
  10. CODEINE [Suspect]
     Dosage: UNK
  11. HYDROMORPHONE [Suspect]
     Dosage: UNK

REACTIONS (1)
  - Drug hypersensitivity [Unknown]
